FAERS Safety Report 19498991 (Version 1)
Quarter: 2021Q3

REPORT INFORMATION
  Report Type: Spontaneous
  Country: DE (occurrence: DE)
  Receive Date: 20210706
  Receipt Date: 20210706
  Transmission Date: 20211014
  Serious: Yes (Other)
  Sender: FDA-Public Use
  Company Number: DE-UCBSA-2021031628

PATIENT
  Age: 22 Year
  Sex: Male

DRUGS (2)
  1. BRIVIACT [Suspect]
     Active Substance: BRIVARACETAM
     Indication: EPILEPSY
     Dosage: 50 MILLIGRAM, 2X/DAY (BID)
     Route: 048
  2. BRIVIACT [Suspect]
     Active Substance: BRIVARACETAM
     Dosage: 50MG 1 TABLET AND 1/2 TABLET
     Route: 048

REACTIONS (4)
  - Wrong technique in product usage process [Unknown]
  - Steatorrhoea [Unknown]
  - Epistaxis [Not Recovered/Not Resolved]
  - Thrombocytopenia [Unknown]
